FAERS Safety Report 6969651-4 (Version None)
Quarter: 2010Q3

REPORT INFORMATION
  Report Type: 
  Country: None (occurrence: None)
  Receive Date: 20100908
  Receipt Date: 20100902
  Transmission Date: 20110219
  Serious: Yes (Other)
  Sender: FDA-Public Use
  Company Number: US-ASTRAZENECA-2007UW16407

PATIENT
  Age: 34 Year
  Sex: Female
  Weight: 117.9 kg

DRUGS (32)
  1. SEROQUEL [Suspect]
     Indication: HALLUCINATION, AUDITORY
     Dosage: 100 - 1200 MG
     Route: 048
     Dates: start: 19981112, end: 20060301
  2. SEROQUEL [Suspect]
     Indication: SLEEP DISORDER
     Dosage: 100 - 1200 MG
     Route: 048
     Dates: start: 19981112, end: 20060301
  3. SEROQUEL [Suspect]
     Indication: HALLUCINATION
     Dosage: 100 - 1200 MG
     Route: 048
     Dates: start: 19981112, end: 20060301
  4. SEROQUEL [Suspect]
     Indication: MOOD ALTERED
     Dosage: 100 - 1200 MG
     Route: 048
     Dates: start: 19981112, end: 20060301
  5. SEROQUEL [Suspect]
     Dosage: 200-1200 MG
     Route: 048
     Dates: start: 20000601, end: 20060301
  6. SEROQUEL [Suspect]
     Dosage: 200-1200 MG
     Route: 048
     Dates: start: 20000601, end: 20060301
  7. SEROQUEL [Suspect]
     Dosage: 200-1200 MG
     Route: 048
     Dates: start: 20000601, end: 20060301
  8. SEROQUEL [Suspect]
     Dosage: 200-1200 MG
     Route: 048
     Dates: start: 20000601, end: 20060301
  9. TOPAMAX [Concomitant]
     Indication: WEIGHT CONTROL
  10. EFFEXOR [Concomitant]
  11. KLONOPIN [Concomitant]
  12. DEPAKOTE [Concomitant]
  13. PROZAC [Concomitant]
  14. NEURONTIN [Concomitant]
  15. RISPERDAL [Concomitant]
     Dates: start: 19980910, end: 20060101
  16. LOPRESSOR [Concomitant]
  17. TEGRETOL [Concomitant]
  18. LITHOBID [Concomitant]
  19. ATIVAN [Concomitant]
  20. REMERON [Concomitant]
  21. DARVOCET [Concomitant]
  22. LASIX [Concomitant]
  23. DONNATAL [Concomitant]
  24. VOLMAX [Concomitant]
  25. ACIPHEX [Concomitant]
  26. AMBIEN [Concomitant]
  27. WELLBUTRIN SR [Concomitant]
  28. GEODON [Concomitant]
     Dates: start: 20030101
  29. COGENTIN [Concomitant]
  30. GLUCOPHAGE [Concomitant]
  31. ZYPREXA [Concomitant]
     Dates: start: 20070101
  32. TRAZODONE HCL [Concomitant]

REACTIONS (10)
  - ARTHROPATHY [None]
  - BACK DISORDER [None]
  - BLOOD CHOLESTEROL INCREASED [None]
  - BLOOD TRIGLYCERIDES INCREASED [None]
  - DIABETES MELLITUS [None]
  - HYPERLIPIDAEMIA [None]
  - HYPERPROLACTINAEMIA [None]
  - OBESITY [None]
  - RETINOPATHY [None]
  - TYPE 2 DIABETES MELLITUS [None]
